FAERS Safety Report 23966921 (Version 1)
Quarter: 2024Q2

REPORT INFORMATION
  Report Type: Spontaneous
  Country: US (occurrence: US)
  Receive Date: 20240612
  Receipt Date: 20240612
  Transmission Date: 20240716
  Serious: No
  Sender: FDA-Public Use
  Company Number: US-ELI_LILLY_AND_COMPANY-US202406006116

PATIENT
  Age: 65 Year
  Sex: Female

DRUGS (3)
  1. MOUNJARO [Suspect]
     Active Substance: TIRZEPATIDE
     Indication: Product used for unknown indication
     Dosage: UNK UNK, UNKNOWN
     Route: 058
  2. LIPITOR [Concomitant]
     Active Substance: ATORVASTATIN CALCIUM
     Indication: Product used for unknown indication
     Dosage: 10 MG, DAILY
  3. VITAMIN B12 [Concomitant]
     Active Substance: CYANOCOBALAMIN
     Indication: Product used for unknown indication
     Dosage: UNK, MONTHLY (1/M) (MONTHLY SHOTS)

REACTIONS (4)
  - Glossodynia [Recovering/Resolving]
  - Aphthous ulcer [Recovering/Resolving]
  - Paraesthesia oral [Recovering/Resolving]
  - Swollen tongue [Recovering/Resolving]

NARRATIVE: CASE EVENT DATE: 20240605
